FAERS Safety Report 8611437-9 (Version None)
Quarter: 2012Q3

REPORT INFORMATION
  Report Type: 
  Country: None (occurrence: None)
  Receive Date: 20120822
  Receipt Date: 20120815
  Transmission Date: 20120928
  Serious: Yes (Other)
  Sender: FDA-Public Use
  Company Number: US-JNJFOC-20120605095

PATIENT
  Age: 52 Year
  Sex: Female

DRUGS (2)
  1. ICY HOT [Suspect]
     Indication: PRODUCT USED FOR UNKNOWN INDICATION
     Route: 065
  2. BENGAY ULTRA STRENGTH PATCH [Suspect]
     Indication: MYALGIA
     Route: 061

REACTIONS (5)
  - BURNS SECOND DEGREE [None]
  - BURN INFECTION [None]
  - HYPERAESTHESIA [None]
  - ABDOMINAL PAIN [None]
  - SCAR [None]
